FAERS Safety Report 15386263 (Version 1)
Quarter: 2018Q3

REPORT INFORMATION
  Report Type: Spontaneous
  Country: US (occurrence: US)
  Receive Date: 20180914
  Receipt Date: 20180914
  Transmission Date: 20181010
  Serious: No
  Sender: FDA-Public Use
  Company Number: US-BAYER-2018-167170

PATIENT
  Age: 68 Year
  Sex: Male

DRUGS (10)
  1. DOXYCYCLINE. [Concomitant]
     Active Substance: DOXYCYCLINE
  2. PREDNISONE. [Concomitant]
     Active Substance: PREDNISONE
     Route: 048
  3. NALTREXONE [Concomitant]
     Active Substance: NALTREXONE
     Dosage: 1.5 MG, QD
  4. LEVOFLOXACIN. [Concomitant]
     Active Substance: LEVOFLOXACIN
  5. NALTREXONE [Concomitant]
     Active Substance: NALTREXONE
     Dosage: 3 MG, TID
  6. NALTREXONE [Concomitant]
     Active Substance: NALTREXONE
     Dosage: 1.5 MG, BID
  7. NALTREXONE [Concomitant]
     Active Substance: NALTREXONE
     Dosage: 1.5 MG, TID
  8. CLOTRIMAZOLE. [Suspect]
     Active Substance: CLOTRIMAZOLE
  9. MINOCYCLINE [Concomitant]
     Active Substance: MINOCYCLINE\MINOCYCLINE HYDROCHLORIDE
  10. CIPROFLOXACIN. [Concomitant]
     Active Substance: CIPROFLOXACIN

REACTIONS (1)
  - Drug ineffective [None]
